FAERS Safety Report 10777798 (Version 2)
Quarter: 2015Q1

REPORT INFORMATION
  Report Type: Spontaneous
  Country: GB (occurrence: GB)
  Receive Date: 20150209
  Receipt Date: 20150220
  Transmission Date: 20150721
  Serious: Yes (Hospitalization, Other)
  Sender: FDA-Public Use
  Company Number: GB-SA-2014SA171001

PATIENT
  Age: 71 Year
  Sex: Male
  Weight: 70 kg

DRUGS (6)
  1. AFLIBERCEPT [Suspect]
     Active Substance: AFLIBERCEPT
     Indication: GASTROINTESTINAL CARCINOMA
     Route: 042
     Dates: start: 20141126, end: 20141126
  2. 5-FU [Concomitant]
     Active Substance: FLUOROURACIL
     Indication: COLORECTAL CANCER
     Route: 042
     Dates: start: 20141126, end: 20141126
  3. IRINOTECAN [Concomitant]
     Active Substance: IRINOTECAN
     Indication: COLORECTAL CANCER
     Route: 042
     Dates: start: 20141126, end: 20141126
  4. FOLINIC ACID [Concomitant]
     Active Substance: LEUCOVORIN
     Indication: COLORECTAL CANCER
     Route: 042
     Dates: start: 20141126, end: 20141126
  5. AFLIBERCEPT [Suspect]
     Active Substance: AFLIBERCEPT
     Indication: GASTROINTESTINAL CARCINOMA
     Route: 042
     Dates: start: 20141126, end: 20141126
  6. AFLIBERCEPT [Suspect]
     Active Substance: AFLIBERCEPT
     Indication: GASTROINTESTINAL CARCINOMA
     Route: 042

REACTIONS (6)
  - Seizure [Recovered/Resolved]
  - Hyperthermia [Recovered/Resolved]
  - Feeling hot [Recovered/Resolved]
  - Hypertension [Recovered/Resolved]
  - Stupor [Recovered/Resolved]
  - Malaise [Recovered/Resolved]

NARRATIVE: CASE EVENT DATE: 20141127
